FAERS Safety Report 7761657-0 (Version None)
Quarter: 2011Q3

REPORT INFORMATION
  Report Type: 
  Country: None (occurrence: None)
  Receive Date: 20110920
  Receipt Date: 20110906
  Transmission Date: 20111222
  Serious: Yes (Other)
  Sender: FDA-Public Use
  Company Number: PHHY2011ES79510

PATIENT
  Age: 49 Year
  Sex: Female

DRUGS (5)
  1. CYCLOSPORINE [Suspect]
     Indication: LIVER TRANSPLANT
     Dosage: 50 MG, DAILY
  2. INTERFERON [Concomitant]
     Dosage: UNK UKN, UNK
     Dates: start: 20010101, end: 20011201
  3. PREDNISONE [Concomitant]
     Dosage: UNK UKN, UNK
  4. ANTI-THYMOCYTE GLOBULIN NOS [Concomitant]
     Dosage: UNK UKN, UNK
  5. RIBAVIRIN [Concomitant]
     Dosage: UNK UKN, UNK
     Dates: end: 20011201

REACTIONS (8)
  - FIBROSIS [None]
  - DEPRESSION [None]
  - AUTOIMMUNE HEPATITIS [None]
  - DIABETES MELLITUS [None]
  - ASPARTATE AMINOTRANSFERASE INCREASED [None]
  - ALANINE AMINOTRANSFERASE INCREASED [None]
  - ANTINUCLEAR ANTIBODY INCREASED [None]
  - HYPERTENSION [None]
